FAERS Safety Report 21602839 (Version 1)
Quarter: 2022Q4

REPORT INFORMATION
  Report Type: Spontaneous
  Country: US (occurrence: None)
  Receive Date: 20221115
  Receipt Date: 20221115
  Transmission Date: 20230112
  Serious: Yes (Other)
  Sender: FDA-Public Use
  Company Number: None

PATIENT
  Age: 11 Year
  Sex: Female
  Weight: 33.7 kg

DRUGS (1)
  1. LUPRON DEPOT-PED [Suspect]
     Active Substance: LEUPROLIDE ACETATE
     Dosage: 30 MG EVERY 3 MONTHS INTRAMUSCULAR?
     Route: 030
     Dates: start: 20220805, end: 20221004

REACTIONS (4)
  - Pain in extremity [None]
  - Muscle disorder [None]
  - Injection site mass [None]
  - Muscle fibrosis [None]

NARRATIVE: CASE EVENT DATE: 20221004
